FAERS Safety Report 8602255-6 (Version None)
Quarter: 2012Q2

REPORT INFORMATION
  Report Type: 
  Country: None (occurrence: None)
  Receive Date: 20120423
  Receipt Date: 20090417
  Transmission Date: 20120825
  Serious: Yes (Other)
  Sender: FDA-Public Use
  Company Number: PHEH2009US03013

PATIENT
  Sex: Female

DRUGS (2)
  1. FEMARA [Suspect]
  2. ARIMIDEX [Concomitant]

REACTIONS (4)
  - BACK DISORDER [None]
  - ARTHRALGIA [None]
  - DEPRESSION [None]
  - MYALGIA [None]
